FAERS Safety Report 23512169 (Version 1)
Quarter: 2024Q1

REPORT INFORMATION
  Report Type: Spontaneous
  Country: FR (occurrence: FR)
  Receive Date: 20240212
  Receipt Date: 20240212
  Transmission Date: 20240410
  Serious: Yes (Hospitalization, Other)
  Sender: FDA-Public Use
  Company Number: FR-CELLTRION INC.-2024FR002944

PATIENT

DRUGS (17)
  1. RITUXIMAB [Suspect]
     Active Substance: RITUXIMAB
     Indication: Mantle cell lymphoma
     Dosage: 700 MG
     Route: 042
     Dates: start: 20231106, end: 20231106
  2. MONTELUKAST [Suspect]
     Active Substance: MONTELUKAST SODIUM
     Indication: Chemotherapy side effect prophylaxis
     Dosage: UNK
     Route: 048
     Dates: start: 20231106, end: 20231106
  3. PENTACARINAT [Suspect]
     Active Substance: PENTAMIDINE ISETHIONATE
     Indication: Antifungal prophylaxis
     Dosage: 2 DF
     Dates: start: 20231030, end: 20231117
  4. POLARAMINE [Suspect]
     Active Substance: DEXCHLORPHENIRAMINE MALEATE
     Indication: Chemotherapy side effect prophylaxis
     Dosage: 5 MG
     Route: 048
     Dates: start: 20231106, end: 20231106
  5. BENDAMUSTINE [Suspect]
     Active Substance: BENDAMUSTINE
     Indication: Mantle cell lymphoma
     Dosage: 170 MG
     Route: 042
     Dates: start: 20231106, end: 20231106
  6. PIPERACILLIN SODIUM\TAZOBACTAM SODIUM [Suspect]
     Active Substance: PIPERACILLIN SODIUM\TAZOBACTAM SODIUM
     Indication: Febrile bone marrow aplasia
     Dosage: 4G/500MG /6H
     Route: 042
     Dates: start: 20231020, end: 20231024
  7. BACTRIM [Suspect]
     Active Substance: SULFAMETHOXAZOLE\TRIMETHOPRIM
     Indication: Antifungal prophylaxis
     Dosage: 3 DF, 1/WEEK
     Route: 048
     Dates: start: 20231002, end: 20231027
  8. BORTEZOMIB [Suspect]
     Active Substance: BORTEZOMIB
     Indication: Mantle cell lymphoma
     Dosage: 2.4 MG
     Route: 058
     Dates: start: 20231106, end: 20231106
  9. METHYLPREDNISOLONE [Suspect]
     Active Substance: METHYLPREDNISOLONE
     Indication: Chemotherapy side effect prophylaxis
     Dosage: 80 MG
     Route: 042
     Dates: start: 20231106, end: 20231106
  10. ONDANSETRON [Suspect]
     Active Substance: ONDANSETRON
     Indication: Prophylaxis of nausea and vomiting
     Dosage: 16 MG
     Dates: start: 20231106, end: 20231106
  11. ELIQUIS [Concomitant]
     Active Substance: APIXABAN
  12. LEVOTHYROXINE [Concomitant]
     Active Substance: LEVOTHYROXINE\LEVOTHYROXINE SODIUM
  13. VALACYCLOVIR HYDROCHLORIDE [Concomitant]
     Active Substance: VALACYCLOVIR HYDROCHLORIDE
  14. BUMETANIDE [Concomitant]
     Active Substance: BUMETANIDE
  15. AMLODIPINE [Concomitant]
     Active Substance: AMLODIPINE BESYLATE
  16. NEBIVOLOL [Concomitant]
     Active Substance: NEBIVOLOL
  17. AMIODARONE [Concomitant]
     Active Substance: AMIODARONE

REACTIONS (4)
  - Eosinophilia [Recovered/Resolved]
  - Acute kidney injury [Recovered/Resolved]
  - Rash [Not Recovered/Not Resolved]
  - Intentional product use issue [Unknown]

NARRATIVE: CASE EVENT DATE: 20231106
